FAERS Safety Report 19865372 (Version 2)
Quarter: 2022Q1

REPORT INFORMATION
  Report Type: Spontaneous
  Country: CA (occurrence: None)
  Receive Date: 20210921
  Receipt Date: 20220210
  Transmission Date: 20220423
  Serious: Yes (Hospitalization, Other)
  Sender: FDA-Public Use
  Company Number: 2021A724497

PATIENT
  Age: 64 Year
  Sex: Male
  Weight: 90 kg

DRUGS (12)
  1. SEROQUEL [Suspect]
     Active Substance: QUETIAPINE FUMARATE
     Route: 048
     Dates: start: 1900, end: 20210407
  2. CELEXA [Suspect]
     Active Substance: CITALOPRAM HYDROBROMIDE
     Route: 048
  3. CELEXA [Suspect]
     Active Substance: CITALOPRAM HYDROBROMIDE
     Route: 048
     Dates: start: 20210407
  4. ALENDRONATE [Concomitant]
     Active Substance: ALENDRONATE SODIUM
     Route: 048
  5. CALCIUM CARBONATE [Concomitant]
     Active Substance: CALCIUM CARBONATE
     Route: 048
  6. CHOLECALCIFEROL [Concomitant]
     Active Substance: CHOLECALCIFEROL
     Dosage: 1000 UNITS, DAILY
     Route: 048
  7. CLONAZEPAM [Concomitant]
     Active Substance: CLONAZEPAM
     Route: 048
  8. LEVOTHYROXINE [Concomitant]
     Active Substance: LEVOTHYROXINE
     Route: 048
  9. NITROFURANTOIN [Concomitant]
     Active Substance: NITROFURANTOIN
     Route: 048
  10. PHENYTOIN [Concomitant]
     Active Substance: PHENYTOIN
     Route: 048
  11. VALPROIC ACID [Concomitant]
     Active Substance: VALPROIC ACID
     Route: 048
  12. VITAMIN B12 [Concomitant]
     Active Substance: CYANOCOBALAMIN
     Route: 048

REACTIONS (4)
  - Cognitive disorder [Not Recovered/Not Resolved]
  - Fall [Not Recovered/Not Resolved]
  - Femur fracture [Not Recovered/Not Resolved]
  - Open reduction of fracture [Not Recovered/Not Resolved]

NARRATIVE: CASE EVENT DATE: 20191101
